FAERS Safety Report 13910685 (Version 1)
Quarter: 2017Q3

REPORT INFORMATION
  Report Type: Spontaneous
  Country: US (occurrence: US)
  Receive Date: 20170826
  Receipt Date: 20170826
  Transmission Date: 20171127
  Serious: Yes (Other)
  Sender: FDA-Public Use
  Company Number: None

PATIENT
  Age: 80 Year
  Sex: Female
  Weight: 69.75 kg

DRUGS (9)
  1. MIRALAX [Concomitant]
     Active Substance: POLYETHYLENE GLYCOL 3350
  2. LINEZOLID. [Suspect]
     Active Substance: LINEZOLID
     Indication: ARTHRITIS INFECTIVE
     Dosage: ?          QUANTITY:1 CAPSULE(S);?
     Route: 048
     Dates: start: 20170525, end: 20170530
  3. PREDNISONE. [Concomitant]
     Active Substance: PREDNISONE
  4. PERCOCET [Concomitant]
     Active Substance: ACETAMINOPHEN\OXYCODONE HYDROCHLORIDE
  5. MULTI VITAMINS [Concomitant]
     Active Substance: VITAMINS
  6. MUSCINEX [Concomitant]
  7. CALCIUM [Concomitant]
     Active Substance: CALCIUM
  8. CIPRO [Concomitant]
     Active Substance: CIPROFLOXACIN HYDROCHLORIDE
  9. MACRODAIN [Concomitant]

REACTIONS (3)
  - Blood urine present [None]
  - Gastric haemorrhage [None]
  - Intestinal haemorrhage [None]

NARRATIVE: CASE EVENT DATE: 20170525
